FAERS Safety Report 8346530-1 (Version None)
Quarter: 2012Q2

REPORT INFORMATION
  Report Type: 
  Country: None (occurrence: None)
  Receive Date: 20120507
  Receipt Date: 20120507
  Transmission Date: 20120825
  Serious: Yes (Hospitalization)
  Sender: FDA-Public Use
  Company Number: None

PATIENT
  Age: 64 Year
  Sex: Male
  Weight: 99.4 kg

DRUGS (2)
  1. VANCOMYCIN [Suspect]
     Indication: ENDOCARDITIS
     Dosage: 1250 MG BID IV
     Route: 042
     Dates: start: 20120311, end: 20120327
  2. GENTAMICIN [Suspect]
     Indication: ENDOCARDITIS
     Dosage: 100 MG BID IV
     Route: 042
     Dates: start: 20120311, end: 20120327

REACTIONS (8)
  - RENAL FAILURE ACUTE [None]
  - HYPERKALAEMIA [None]
  - BALANCE DISORDER [None]
  - PRODUCTIVE COUGH [None]
  - NEPHRITIS [None]
  - PERICARDIAL EFFUSION [None]
  - DISTURBANCE IN ATTENTION [None]
  - RENAL TUBULAR NECROSIS [None]
